FAERS Safety Report 7772857-8 (Version None)
Quarter: 2011Q3

REPORT INFORMATION
  Report Type: 
  Country: None (occurrence: None)
  Receive Date: 20110922
  Receipt Date: 20100930
  Transmission Date: 20111222
  Serious: No
  Sender: FDA-Public Use
  Company Number: US-ASTRAZENECA-2010SE46174

PATIENT
  Age: 60 Year
  Sex: Male
  Weight: 72.6 kg

DRUGS (9)
  1. SEROQUEL [Suspect]
     Route: 048
     Dates: start: 20100101
  2. KEPPRA [Concomitant]
     Indication: CONVULSION
  3. SEROQUEL [Suspect]
     Route: 048
     Dates: start: 20100101
  4. NIMENDA [Concomitant]
  5. SEROQUEL [Suspect]
     Indication: PARANOIA
     Route: 048
     Dates: start: 20060101
  6. EFFEXOR [Concomitant]
  7. SEROQUEL [Suspect]
     Indication: DELUSION
     Route: 048
     Dates: start: 20060101
  8. SINEMET [Concomitant]
  9. SODIUM CHLORIDE INJ [Concomitant]

REACTIONS (2)
  - TABLET PHYSICAL ISSUE [None]
  - BLOOD SODIUM DECREASED [None]
